FAERS Safety Report 20766870 (Version 1)
Quarter: 2022Q2

REPORT INFORMATION
  Report Type: Spontaneous
  Country: CA (occurrence: CA)
  Receive Date: 20220429
  Receipt Date: 20220429
  Transmission Date: 20220720
  Serious: Yes (Other)
  Sender: FDA-Public Use
  Company Number: CA-JNJFOC-20220452713

PATIENT
  Age: 30 Year
  Sex: Female

DRUGS (1)
  1. REMICADE [Suspect]
     Active Substance: INFLIXIMAB
     Indication: Crohn^s disease
     Route: 042

REACTIONS (5)
  - Asthenia [Not Recovered/Not Resolved]
  - Toothache [Not Recovered/Not Resolved]
  - Abscess [Not Recovered/Not Resolved]
  - Nausea [Not Recovered/Not Resolved]
  - Tooth abscess [Not Recovered/Not Resolved]
